FAERS Safety Report 9410526 (Version 6)
Quarter: 2015Q1

REPORT INFORMATION
  Report Type: Spontaneous
  Country: US (occurrence: US)
  Receive Date: 20130719
  Receipt Date: 20150121
  Transmission Date: 20150721
  Serious: Yes (Other)
  Sender: FDA-Public Use
  Company Number: US-009507513-1307USA008142

PATIENT
  Sex: Male
  Weight: 95.24 kg

DRUGS (8)
  1. PROPECIA [Suspect]
     Active Substance: FINASTERIDE
     Indication: ANDROGENETIC ALOPECIA
     Dosage: 1 MG, QD
     Route: 048
     Dates: start: 20000822, end: 20030129
  2. PROPECIA [Suspect]
     Active Substance: FINASTERIDE
     Indication: ALOPECIA
  3. PENTASA [Concomitant]
     Active Substance: MESALAMINE
     Indication: CROHN^S DISEASE
     Dosage: UNK
     Dates: start: 1995, end: 201303
  4. EFFEXOR [Concomitant]
     Active Substance: VENLAFAXINE HYDROCHLORIDE
     Indication: DEPRESSION
     Dosage: UNK
     Dates: start: 1990
  5. PREDNISONE. [Concomitant]
     Active Substance: PREDNISONE
     Indication: CROHN^S DISEASE
     Dosage: UNK
     Dates: start: 1995, end: 201303
  6. BUSPIRONE HYDROCHLORIDE. [Concomitant]
     Active Substance: BUSPIRONE HYDROCHLORIDE
     Indication: DEPRESSION
     Dosage: UNK
     Dates: start: 1990
  7. FLAGYL [Concomitant]
     Active Substance: METRONIDAZOLE\METRONIDAZOLE HYDROCHLORIDE
     Indication: CROHN^S DISEASE
     Dosage: UNK
     Dates: start: 1995, end: 201303
  8. BICILLIN [Concomitant]
     Active Substance: PENICILLIN G BENZATHINE
     Indication: BACTERIAL INFECTION
     Dosage: UNK
     Dates: start: 1995, end: 201303

REACTIONS (21)
  - Sleep apnoea syndrome [Unknown]
  - Insomnia [Unknown]
  - Psoriasis [Unknown]
  - Vitamin B12 deficiency [Unknown]
  - Sexual dysfunction [Not Recovered/Not Resolved]
  - Depression [Not Recovered/Not Resolved]
  - Myalgia [Unknown]
  - Spinal laminectomy [Unknown]
  - Cognitive disorder [Not Recovered/Not Resolved]
  - Libido disorder [Unknown]
  - Gastrooesophageal reflux disease [Unknown]
  - Testicular failure [Unknown]
  - Colectomy [Unknown]
  - Appendicectomy [Unknown]
  - Vasectomy [Unknown]
  - Rhinitis [Unknown]
  - Anaemia [Unknown]
  - Rosacea [Unknown]
  - Anxiety [Unknown]
  - Erectile dysfunction [Not Recovered/Not Resolved]
  - Abdominal pain [Unknown]

NARRATIVE: CASE EVENT DATE: 200102
